FAERS Safety Report 19755215 (Version 1)
Quarter: 2021Q3

REPORT INFORMATION
  Report Type: Spontaneous
  Country: US (occurrence: US)
  Receive Date: 20210827
  Receipt Date: 20210827
  Transmission Date: 20211014
  Serious: No
  Sender: FDA-Public Use
  Company Number: US-JNJFOC-20210835877

PATIENT
  Age: 87 Year
  Sex: Female

DRUGS (1)
  1. WOMENS ROGAINE UNSCENTED [Suspect]
     Active Substance: MINOXIDIL
     Indication: ALOPECIA
     Dosage: HALF CAPFUL THEN TRANSITIONED TO FULL CAP AMOUNT ONCE DAILY
     Route: 065
     Dates: start: 20210316

REACTIONS (2)
  - Hair growth abnormal [Unknown]
  - Overdose [Unknown]

NARRATIVE: CASE EVENT DATE: 2021
